FAERS Safety Report 7781833-0 (Version None)
Quarter: 2011Q3

REPORT INFORMATION
  Report Type: 
  Country: None (occurrence: None)
  Receive Date: 20110927
  Receipt Date: 20110923
  Transmission Date: 20111222
  Serious: Yes (Other)
  Sender: FDA-Public Use
  Company Number: FR-BRISTOL-MYERS SQUIBB COMPANY-15659642

PATIENT
  Age: 62 Year
  Sex: Male

DRUGS (1)
  1. BELATACEPT [Suspect]
     Indication: RENAL TRANSPLANT
     Dosage: NO OF COURSE 3 STOPPED ON 19MAY11.
     Route: 042
     Dates: start: 20061229, end: 20110519

REACTIONS (1)
  - PROSTATE CANCER [None]
